FAERS Safety Report 8977796 (Version 1)
Quarter: 2012Q4

REPORT INFORMATION
  Report Type: 
  Country: US (occurrence: US)
  Receive Date: 20121220
  Receipt Date: 20121220
  Transmission Date: 20130627
  Serious: Yes (Other)
  Sender: FDA-Public Use
  Company Number: US-ENDO PHARMACEUTICALS INC.-HCDA20120114

PATIENT
  Sex: Male

DRUGS (3)
  1. HYDROCODONE/ACETAMINOPHEN 10MG/325MG [Suspect]
     Indication: CERVICAL VERTEBRAL FRACTURE
     Dosage: 280/9100 mg
     Route: 048
     Dates: start: 2012
  2. HYDROCODONE/ACETAMINOPHEN 10MG/325MG [Suspect]
     Indication: INTERVERTEBRAL DISC PROTRUSION
     Dosage: 140/4550 mg
     Route: 048
     Dates: end: 2012
  3. HYDROCODONE/ACETAMINOPHEN 10MG/325MG [Suspect]
     Indication: PAIN

REACTIONS (4)
  - Intentional overdose [Not Recovered/Not Resolved]
  - Inappropriate schedule of drug administration [Not Recovered/Not Resolved]
  - Prescribed overdose [Not Recovered/Not Resolved]
  - Drug ineffective [Not Recovered/Not Resolved]
